FAERS Safety Report 24995151 (Version 3)
Quarter: 2025Q2

REPORT INFORMATION
  Report Type: Spontaneous
  Country: JP (occurrence: JP)
  Receive Date: 20250221
  Receipt Date: 20250616
  Transmission Date: 20250716
  Serious: Yes (Other)
  Sender: ALEXION PHARMACEUTICALS
  Company Number: JP-ASTRAZENECA-230062852_013120_P_1

PATIENT
  Age: 70 Year

DRUGS (4)
  1. IMFINZI [Suspect]
     Active Substance: DURVALUMAB
     Indication: Hepatocellular carcinoma
  2. IMJUDO [Suspect]
     Active Substance: TREMELIMUMAB\TREMELIMUMAB-ACTL
     Indication: Hepatocellular carcinoma
  3. PREDONINE [Concomitant]
     Active Substance: PREDNISOLONE
  4. INFLIXIMAB [Concomitant]
     Active Substance: INFLIXIMAB

REACTIONS (7)
  - Adrenal insufficiency [Unknown]
  - Rash [Unknown]
  - Liver disorder [Unknown]
  - Enterocolitis [Unknown]
  - Liver carcinoma ruptured [Unknown]
  - Platelet count decreased [Unknown]
  - Diarrhoea [Unknown]
